FAERS Safety Report 4356375-5 (Version None)
Quarter: 2004Q2

REPORT INFORMATION
  Report Type: 
  Country: None (occurrence: None)
  Receive Date: 20040506
  Receipt Date: 20040423
  Transmission Date: 20050107
  Serious: Yes (Hospitalization)
  Sender: FDA-Public Use
  Company Number: 2004SE01921

PATIENT
  Age: 65 Year
  Sex: Female
  Weight: 71 kg

DRUGS (5)
  1. CRESTOR [Suspect]
     Indication: CARDIAC DISORDER
     Dosage: 40 MG DAILY PO
     Route: 048
     Dates: start: 20040201, end: 20040330
  2. CRESTOR [Suspect]
     Indication: TYPE IIA HYPERLIPIDAEMIA
     Dosage: 40 MG DAILY PO
     Route: 048
     Dates: start: 20040201, end: 20040330
  3. SINTROM [Concomitant]
  4. APROVEL [Concomitant]
  5. TRANXENE [Concomitant]

REACTIONS (2)
  - DISEASE RECURRENCE [None]
  - EPISTAXIS [None]
